FAERS Safety Report 21105416 (Version 1)
Quarter: 2022Q3

REPORT INFORMATION
  Report Type: Spontaneous
  Country: US (occurrence: None)
  Receive Date: 20220720
  Receipt Date: 20220720
  Transmission Date: 20221027
  Serious: No
  Sender: FDA-Public Use
  Company Number: None

PATIENT

DRUGS (3)
  1. ANDEXXA [Suspect]
     Active Substance: ANDEXANET ALFA
  2. RIVAROXABAN [Suspect]
     Active Substance: RIVAROXABAN
     Route: 048
  3. APIXABAN [Suspect]
     Active Substance: APIXABAN
     Route: 048

REACTIONS (2)
  - Transcription medication error [None]
  - Intercepted product administration error [None]
